FAERS Safety Report 8577630-9 (Version None)
Quarter: 2012Q3

REPORT INFORMATION
  Report Type: 
  Country: None (occurrence: None)
  Receive Date: 20120807
  Receipt Date: 20120731
  Transmission Date: 20120928
  Serious: Yes (Hospitalization)
  Sender: FDA-Public Use
  Company Number: FR-SANOFI-AVENTIS-2012SA021320

PATIENT
  Age: 61 Year
  Sex: Male

DRUGS (6)
  1. LOVENOX [Suspect]
     Route: 058
     Dates: start: 20120227, end: 20120302
  2. AMITRIPTYLINE HYDROCHLORIDE [Concomitant]
     Route: 048
     Dates: start: 20120210
  3. LOVENOX [Suspect]
     Route: 058
     Dates: start: 20120226, end: 20120227
  4. PREVISCAN [Suspect]
     Route: 048
     Dates: start: 20120227, end: 20120302
  5. PREVISCAN [Suspect]
     Indication: THROMBOSIS PROPHYLAXIS
     Dosage: 20 OR 25 MG
     Route: 048
     Dates: start: 20120207, end: 20120226
  6. ATORVASTATIN [Concomitant]
     Route: 048

REACTIONS (3)
  - INTERNATIONAL NORMALISED RATIO INCREASED [None]
  - ANAEMIA [None]
  - SUBDURAL HAEMATOMA [None]
